FAERS Safety Report 8042193 (Version 5)
Quarter: 2014Q1

REPORT INFORMATION
  Report Type: Spontaneous
  Country: US (occurrence: US)
  Receive Date: 20110718
  Receipt Date: 20140224
  Transmission Date: 20141002
  Serious: Yes (Death, Hospitalization)
  Sender: FDA-Public Use
  Company Number: US-GLAXOSMITHKLINE-A0936944A

PATIENT
  Age: 69 Year
  Sex: Male
  Weight: 117.3 kg

DRUGS (2)
  1. AVANDIA [Suspect]
     Indication: DIABETES MELLITUS
     Route: 048
     Dates: start: 200510, end: 200811
  2. AVANDAMET [Suspect]
     Indication: DIABETES MELLITUS
     Route: 048
     Dates: start: 200509

REACTIONS (3)
  - Cardiac arrest [Fatal]
  - Myocardial ischaemia [Fatal]
  - Myocardial infarction [Unknown]
